APPROVED DRUG PRODUCT: TADALAFIL
Active Ingredient: TADALAFIL
Strength: 2.5MG
Dosage Form/Route: TABLET;ORAL
Application: A216279 | Product #002 | TE Code: AB1
Applicant: SHANDONG NEW TIME PHARMACEUTICAL CO LTD
Approved: Dec 4, 2024 | RLD: No | RS: No | Type: RX